FAERS Safety Report 6796381-4 (Version None)
Quarter: 2010Q2

REPORT INFORMATION
  Report Type: 
  Country: None (occurrence: None)
  Receive Date: 20100622
  Receipt Date: 20081209
  Transmission Date: 20101027
  Serious: Yes (Death)
  Sender: FDA-Public Use
  Company Number: LEO-2010-00519

PATIENT
  Sex: Male
  Weight: 0.4 kg

DRUGS (3)
  1. INNOHEP [Suspect]
     Indication: DRUG EXPOSURE DURING PREGNANCY
     Dosage: TRANSPLACENTAL
     Route: 064
     Dates: start: 20060730, end: 20060806
  2. CLINDAMYCIN HCL [Concomitant]
  3. MAGNESIA (MAGNESIUM HYDROXIDE) [Concomitant]

REACTIONS (5)
  - DEATH NEONATAL [None]
  - DRUG EXPOSURE DURING PREGNANCY [None]
  - MULTIPLE PREGNANCY [None]
  - PREMATURE BABY [None]
  - STILLBIRTH [None]
